FAERS Safety Report 18599783 (Version 2)
Quarter: 2021Q3

REPORT INFORMATION
  Report Type: Spontaneous
  Country: US (occurrence: US)
  Receive Date: 20201210
  Receipt Date: 20210716
  Transmission Date: 20211014
  Serious: No
  Sender: FDA-Public Use
  Company Number: US-PFIZER INC-2020387586

PATIENT
  Age: 62 Year
  Sex: Female

DRUGS (1)
  1. IBRANCE [Suspect]
     Active Substance: PALBOCICLIB
     Indication: BREAST CANCER FEMALE
     Dosage: 125 MG, CYCLIC (DAILY FOR 21 DAYS ON, 7 OFF BY MOUTH)
     Route: 048
     Dates: start: 201809

REACTIONS (9)
  - Oral pain [Unknown]
  - Product dose omission issue [Unknown]
  - Alopecia [Unknown]
  - White blood cell count decreased [Recovered/Resolved]
  - Dyspnoea [Unknown]
  - Intentional overdose [Unknown]
  - Arthralgia [Unknown]
  - Fatigue [Unknown]
  - Bone pain [Unknown]
